FAERS Safety Report 7592337-2 (Version None)
Quarter: 2011Q3

REPORT INFORMATION
  Report Type: 
  Country: None (occurrence: None)
  Receive Date: 20110705
  Receipt Date: 20110705
  Transmission Date: 20111222
  Serious: Yes (Life-Threatening)
  Sender: FDA-Public Use
  Company Number: None

PATIENT
  Age: 44 Year
  Sex: Female
  Weight: 90.7194 kg

DRUGS (1)
  1. LISINOPRIL AND HYDROCHLOROTHIAZIDE [Suspect]
     Indication: HYPERTENSION
     Dosage: 1/2 TAB DAILY PO
     Route: 048
     Dates: start: 20110525, end: 20110628

REACTIONS (3)
  - ANGIOEDEMA [None]
  - COUGH [None]
  - DRUG HYPERSENSITIVITY [None]
